FAERS Safety Report 5868225-6 (Version None)
Quarter: 2008Q3

REPORT INFORMATION
  Report Type: 
  Country: None (occurrence: None)
  Receive Date: 20080902
  Receipt Date: 20080823
  Transmission Date: 20090109
  Serious: Yes (Hospitalization)
  Sender: FDA-Public Use
  Company Number: DE-GENENTECH-267099

PATIENT
  Sex: Male

DRUGS (2)
  1. MABTHERA [Suspect]
     Indication: CHRONIC LYMPHOCYTIC LEUKAEMIA
  2. UNSPECIFIED DRUG [Concomitant]
     Indication: PARKINSON'S DISEASE

REACTIONS (2)
  - DRUG ERUPTION [None]
  - NEUTROPENIA [None]
